FAERS Safety Report 10915751 (Version 1)
Quarter: 2015Q1

REPORT INFORMATION
  Report Type: Spontaneous
  Country: US (occurrence: None)
  Receive Date: 20150311
  Receipt Date: 20150311
  Transmission Date: 20150721
  Serious: Yes (Other)
  Sender: FDA-Public Use
  Company Number: None

PATIENT
  Sex: Female
  Weight: 99.79 kg

DRUGS (38)
  1. OMEPRFAZOLE [Concomitant]
  2. ISOSORBIDE [Concomitant]
     Active Substance: ISOSORBIDE
  3. SIMVASTATIN. [Concomitant]
     Active Substance: SIMVASTATIN
  4. TYLENOL [Concomitant]
     Active Substance: ACETAMINOPHEN
  5. DESONIDE. [Concomitant]
     Active Substance: DESONIDE
  6. HYDRALAZINE [Concomitant]
     Active Substance: HYDRALAZINE HYDROCHLORIDE
  7. LOSARTAN [Concomitant]
     Active Substance: LOSARTAN
  8. COUMADIN [Concomitant]
     Active Substance: WARFARIN SODIUM
  9. FUROSEMIDE. [Concomitant]
     Active Substance: FUROSEMIDE
  10. HYDROCHLOROTHIAZIDE. [Concomitant]
     Active Substance: HYDROCHLOROTHIAZIDE
  11. OMEPRAZOLE. [Concomitant]
     Active Substance: OMEPRAZOLE
  12. ISOSORBIDE [Concomitant]
     Active Substance: ISOSORBIDE
  13. FERROSULFATE COLACE [Concomitant]
  14. FUROSEMIDE. [Concomitant]
     Active Substance: FUROSEMIDE
  15. SIMVASTATIN. [Concomitant]
     Active Substance: SIMVASTATIN
  16. DIPHENHYDRAMINE [Concomitant]
     Active Substance: DIPHENHYDRAMINE
  17. METOPROLOL [Concomitant]
     Active Substance: METOPROLOL
  18. HYDROCHLOROTHIAZIDE. [Concomitant]
     Active Substance: HYDROCHLOROTHIAZIDE
  19. METFORMINE [Concomitant]
     Active Substance: METFORMIN HYDROCHLORIDE
  20. SYMBICORT [Concomitant]
     Active Substance: BUDESONIDE\FORMOTEROL FUMARATE DIHYDRATE
  21. TRAMADOL [Concomitant]
     Active Substance: TRAMADOL
  22. VICTOZA [Concomitant]
     Active Substance: LIRAGLUTIDE
  23. TRAMADOL [Concomitant]
     Active Substance: TRAMADOL
  24. TYLENOL [Concomitant]
     Active Substance: ACETAMINOPHEN
  25. CENTRUM-SILVER VITAMINS [Concomitant]
  26. VICTOZA [Suspect]
     Active Substance: LIRAGLUTIDE
     Indication: DIABETES MELLITUS
  27. LOSARTAN [Concomitant]
     Active Substance: LOSARTAN
  28. METOPROLOL [Concomitant]
     Active Substance: METOPROLOL
  29. METFORMIN [Concomitant]
     Active Substance: METFORMIN HYDROCHLORIDE
  30. TYLENOL [Concomitant]
     Active Substance: ACETAMINOPHEN
  31. ALBUTEROL. [Concomitant]
     Active Substance: ALBUTEROL
  32. NOV-LONG [Concomitant]
  33. NIFEDIPINE. [Concomitant]
     Active Substance: NIFEDIPINE
  34. COUMADIN [Concomitant]
     Active Substance: WARFARIN SODIUM
  35. ALBUTEROL. [Concomitant]
     Active Substance: ALBUTEROL
  36. NOVOLOG [Concomitant]
     Active Substance: INSULIN ASPART
  37. HYDRFEAZINE [Concomitant]
  38. SYMBICORT [Concomitant]
     Active Substance: BUDESONIDE\FORMOTEROL FUMARATE DIHYDRATE

REACTIONS (4)
  - Rash pruritic [None]
  - Alopecia [None]
  - Vulvovaginal swelling [None]
  - Rash erythematous [None]
